FAERS Safety Report 24441489 (Version 2)
Quarter: 2024Q4

REPORT INFORMATION
  Report Type: Report from Study
  Country: DE (occurrence: DE)
  Receive Date: 20241016
  Receipt Date: 20241017
  Transmission Date: 20250115
  Serious: No
  Sender: ROCHE
  Company Number: DE-ROCHE-3495075

PATIENT
  Age: 69 Year
  Sex: Male
  Weight: 92.0 kg

DRUGS (20)
  1. EMICIZUMAB [Suspect]
     Active Substance: EMICIZUMAB
     Indication: Haemophilia A with anti factor VIII
     Route: 058
     Dates: start: 20200604, end: 20200625
  2. EMICIZUMAB [Suspect]
     Active Substance: EMICIZUMAB
     Route: 058
     Dates: start: 20210518, end: 20230705
  3. EMICIZUMAB [Suspect]
     Active Substance: EMICIZUMAB
     Route: 058
     Dates: start: 20230726
  4. EMICIZUMAB [Suspect]
     Active Substance: EMICIZUMAB
     Route: 058
     Dates: start: 20200702, end: 20210422
  5. ADVATE [Concomitant]
     Active Substance: ANTIHEMOPHILIC FACTOR, HUMAN RECOMBINANT
     Route: 042
     Dates: start: 20160606, end: 20200603
  6. ASPIRIN [Concomitant]
     Active Substance: ASPIRIN
     Route: 048
     Dates: start: 2013
  7. CLOPIDOGREL [Concomitant]
     Active Substance: CLOPIDOGREL BISULFATE
     Route: 048
     Dates: start: 2013, end: 201912
  8. BISOPROLOL [Concomitant]
     Active Substance: BISOPROLOL\BISOPROLOL FUMARATE
     Route: 048
     Dates: start: 2013
  9. INSPRA [Concomitant]
     Active Substance: EPLERENONE
     Route: 048
     Dates: start: 2013
  10. AMLODIPINE BESYLATE [Concomitant]
     Active Substance: AMLODIPINE BESYLATE
     Route: 048
     Dates: start: 2014
  11. PANTOZOL [Concomitant]
     Active Substance: PANTOPRAZOLE SODIUM
     Indication: Prophylaxis
     Route: 048
     Dates: start: 2014
  12. MOLSIDOMINE [Concomitant]
     Active Substance: MOLSIDOMINE
     Route: 048
     Dates: start: 2014
  13. VALSARTAN [Concomitant]
     Active Substance: VALSARTAN
     Route: 048
     Dates: start: 2016
  14. BIKTARVY [Concomitant]
     Active Substance: BICTEGRAVIR SODIUM\EMTRICITABINE\TENOFOVIR ALAFENAMIDE FUMARATE
     Route: 048
     Dates: start: 20190201
  15. ATORVASTATIN [Concomitant]
     Active Substance: ATORVASTATIN
     Route: 048
     Dates: start: 201901
  16. AFSTYLA ANTIHEMOPHILIC FACTOR (RECOMBINANT), SINGLE CHAIN [Concomitant]
     Active Substance: ANTIHEMOPHILIC FACTOR, HUMAN RECOMBINANT
     Indication: Prophylaxis
     Route: 042
     Dates: start: 20210504, end: 20210517
  17. AFSTYLA ANTIHEMOPHILIC FACTOR (RECOMBINANT), SINGLE CHAIN [Concomitant]
     Active Substance: ANTIHEMOPHILIC FACTOR, HUMAN RECOMBINANT
     Route: 042
     Dates: start: 20230719, end: 20230723
  18. AFSTYLA ANTIHEMOPHILIC FACTOR (RECOMBINANT), SINGLE CHAIN [Concomitant]
     Active Substance: ANTIHEMOPHILIC FACTOR, HUMAN RECOMBINANT
     Route: 042
     Dates: start: 20230712, end: 20230718
  19. AFSTYLA ANTIHEMOPHILIC FACTOR (RECOMBINANT), SINGLE CHAIN [Concomitant]
     Active Substance: ANTIHEMOPHILIC FACTOR, HUMAN RECOMBINANT
     Route: 042
     Dates: start: 20210504, end: 20210510
  20. CYKLOKAPRON [Concomitant]
     Active Substance: TRANEXAMIC ACID
     Route: 048
     Dates: start: 20230719, end: 20230722

REACTIONS (1)
  - Tooth disorder [Recovered/Resolved]

NARRATIVE: CASE EVENT DATE: 20230302
